FAERS Safety Report 8863067 (Version 4)
Quarter: 2012Q4

REPORT INFORMATION
  Report Type: 
  Country: US (occurrence: US)
  Receive Date: 20121026
  Receipt Date: 20121203
  Transmission Date: 20130627
  Serious: Yes (Death, Hospitalization, Other)
  Sender: FDA-Public Use
  Company Number: US-ASTELLAS-2012US010389

PATIENT
  Sex: Male
  Weight: 73 kg

DRUGS (1)
  1. PROGRAF [Suspect]
     Indication: RENAL TRANSPLANT
     Dosage: 1 mg in morning /0.5 mg in evening
     Route: 048
     Dates: start: 19990616, end: 20121030

REACTIONS (14)
  - Sepsis [Fatal]
  - Abscess intestinal [Fatal]
  - Surgery [Unknown]
  - Coronary artery disease [Unknown]
  - Ankle operation [Unknown]
  - Intestinal operation [Unknown]
  - Squamous cell carcinoma of skin [Unknown]
  - Atrial fibrillation [Unknown]
  - Diabetic nephropathy [Unknown]
  - Spinal column stenosis [Unknown]
  - Cataract [Unknown]
  - Hypothyroidism [Unknown]
  - Hyperlipidaemia [Unknown]
  - Orthostatic hypotension [Unknown]
